FAERS Safety Report 4681005-2 (Version None)
Quarter: 2005Q2

REPORT INFORMATION
  Report Type: 
  Country: None (occurrence: None)
  Receive Date: 20050603
  Receipt Date: 20050114
  Transmission Date: 20051028
  Serious: Yes (Disabling)
  Sender: FDA-Public Use
  Company Number: 200510355US

PATIENT
  Age: 65 Year
  Sex: Female

DRUGS (1)
  1. KETEK [Suspect]
     Indication: BRONCHITIS
     Dosage: DOSE: UNK
     Dates: start: 20050107

REACTIONS (2)
  - VISION BLURRED [None]
  - VISUAL DISTURBANCE [None]
